FAERS Safety Report 7129176-2 (Version None)
Quarter: 2010Q4

REPORT INFORMATION
  Report Type: 
  Country: None (occurrence: None)
  Receive Date: 20101130
  Receipt Date: 20101123
  Transmission Date: 20110411
  Serious: Yes (Hospitalization)
  Sender: FDA-Public Use
  Company Number: NL-MERCK-1011NLD00014

PATIENT
  Age: 86 Year
  Sex: Male
  Weight: 66 kg

DRUGS (15)
  1. COZAAR [Suspect]
     Indication: HYPERTENSION
     Route: 048
     Dates: start: 20060101
  2. SIMVASTATIN [Suspect]
     Indication: CEREBROVASCULAR ACCIDENT
     Route: 048
     Dates: start: 20010101, end: 20101104
  3. OMEPRAZOLE [Suspect]
     Indication: PROPHYLAXIS
     Route: 065
     Dates: start: 20060101, end: 20101104
  4. ASPIRIN [Concomitant]
     Route: 048
  5. NITROGLYCERIN [Concomitant]
     Route: 065
  6. SPIRONOLACTONE [Concomitant]
     Route: 048
  7. FLUTICASONE PROPIONATE AND SALMETEROL XINAFOATE [Concomitant]
     Route: 055
  8. FLUTICASONE [Concomitant]
     Route: 055
  9. TAMSULOSIN HYDROCHLORIDE [Concomitant]
     Route: 048
  10. TIOTROPIUM BROMIDE [Concomitant]
     Route: 055
  11. METOPROLOL [Concomitant]
     Route: 048
  12. FUROSEMIDE [Concomitant]
     Route: 048
  13. FERROUS SULFATE [Concomitant]
     Route: 048
  14. LACTITOL [Concomitant]
     Route: 048
  15. ACETAMINOPHEN [Suspect]
     Indication: PAIN
     Route: 048
     Dates: start: 20101001, end: 20101104

REACTIONS (2)
  - LIVER FUNCTION TEST ABNORMAL [None]
  - RHABDOMYOLYSIS [None]
